FAERS Safety Report 12590453 (Version 5)
Quarter: 2017Q3

REPORT INFORMATION
  Report Type: Report from Study
  Country: AU (occurrence: AU)
  Receive Date: 20160725
  Receipt Date: 20170828
  Transmission Date: 20171127
  Serious: Yes (Hospitalization)
  Sender: FDA-Public Use
  Company Number: AU-BIOGEN-2016BI00211730

PATIENT
  Age: 45 Year
  Sex: Female

DRUGS (2)
  1. CLARATYNE [Concomitant]
     Active Substance: LORATADINE
     Indication: PREMEDICATION
     Route: 065
  2. TYSABRI [Suspect]
     Active Substance: NATALIZUMAB
     Indication: MULTIPLE SCLEROSIS
     Dosage: INFUSED OVER 1 HR
     Route: 042
     Dates: start: 20160118

REACTIONS (30)
  - Body temperature fluctuation [Unknown]
  - Flushing [Unknown]
  - Tremor [Recovered/Resolved]
  - Nail infection [Recovered/Resolved]
  - Hypersomnia [Unknown]
  - Vomiting [Recovered/Resolved]
  - Head discomfort [Recovered/Resolved]
  - Hyperhidrosis [Recovered/Resolved]
  - Insomnia [Recovered/Resolved]
  - Therapeutic response shortened [Unknown]
  - Poor venous access [Unknown]
  - Nausea [Unknown]
  - Dizziness [Recovered/Resolved]
  - Feeling hot [Unknown]
  - Palpitations [Recovered/Resolved]
  - Fatigue [Recovered/Resolved]
  - Musculoskeletal chest pain [Unknown]
  - Menorrhagia [Not Recovered/Not Resolved]
  - Uterine disorder [Unknown]
  - Erythema [Recovered/Resolved]
  - Burning sensation [Recovered/Resolved]
  - Feeling abnormal [Recovered/Resolved]
  - Tooth disorder [Unknown]
  - Skin discolouration [Recovered/Resolved]
  - Heart rate increased [Recovered/Resolved]
  - Incorrect drug administration rate [Recovered/Resolved]
  - Muscular weakness [Unknown]
  - Vision blurred [Unknown]
  - Hypoaesthesia oral [Unknown]
  - Multiple sclerosis relapse [Not Recovered/Not Resolved]

NARRATIVE: CASE EVENT DATE: 201601
